FAERS Safety Report 7002133-2 (Version None)
Quarter: 2010Q3

REPORT INFORMATION
  Report Type: 
  Country: None (occurrence: None)
  Receive Date: 20100920
  Receipt Date: 20100527
  Transmission Date: 20110219
  Serious: Yes (Hospitalization)
  Sender: FDA-Public Use
  Company Number: US-ASTRAZENECA-2007UW14240

PATIENT
  Age: 15755 Day
  Sex: Female
  Weight: 94.8 kg

DRUGS (11)
  1. SEROQUEL [Suspect]
     Indication: AFFECTIVE DISORDER
     Dosage: 25 MG TO 100 MG
     Route: 048
     Dates: start: 20000718, end: 20050101
  2. SEROQUEL [Suspect]
     Indication: BIPOLAR DISORDER
     Dosage: 25 MG TO 100 MG
     Route: 048
     Dates: start: 20000718, end: 20050101
  3. SEROQUEL [Suspect]
     Route: 048
     Dates: start: 20050215
  4. SEROQUEL [Suspect]
     Route: 048
     Dates: start: 20050215
  5. ZYPREXA [Concomitant]
  6. LITHIUM [Concomitant]
     Indication: AFFECTIVE DISORDER
     Route: 048
     Dates: start: 20050215
  7. CLONAZEPAM [Concomitant]
  8. ABILIFY [Concomitant]
  9. IMDUR [Concomitant]
     Route: 048
     Dates: start: 20050215
  10. VASOTEC [Concomitant]
     Route: 048
     Dates: start: 20050215
  11. LOPRESSOR [Concomitant]
     Route: 048
     Dates: start: 20050215

REACTIONS (4)
  - BLOOD CHOLESTEROL INCREASED [None]
  - BLOOD PRESSURE [None]
  - CHEST PAIN [None]
  - DIABETES MELLITUS [None]
